FAERS Safety Report 24392592 (Version 3)
Quarter: 2024Q4

REPORT INFORMATION
  Report Type: Report from Study
  Country: US (occurrence: US)
  Receive Date: 20241003
  Receipt Date: 20241125
  Transmission Date: 20250115
  Serious: Yes (Hospitalization, Other)
  Sender: UCB
  Company Number: US-UCBSA-2024049499

PATIENT
  Age: 3 Year
  Sex: Female

DRUGS (3)
  1. FINTEPLA [Suspect]
     Active Substance: FENFLURAMINE
     Indication: Lennox-Gastaut syndrome
     Dosage: 2.1 MILLILITER, 2X/DAY (BID)
     Dates: start: 20240831
  2. FINTEPLA [Suspect]
     Active Substance: FENFLURAMINE
     Dosage: 2.1 MILLILITER, 2X/DAY (BID)
  3. FINTEPLA [Suspect]
     Active Substance: FENFLURAMINE
     Dosage: 2.1 MILLILITER, 2X/DAY (BID)

REACTIONS (10)
  - Atonic seizures [Not Recovered/Not Resolved]
  - Seizure [Not Recovered/Not Resolved]
  - Fall [Not Recovered/Not Resolved]
  - Somnolence [Recovered/Resolved]
  - Irritability [Recovered/Resolved]
  - Anger [Not Recovered/Not Resolved]
  - Decreased appetite [Recovered/Resolved]
  - Eye contusion [Not Recovered/Not Resolved]
  - Lethargy [Recovered/Resolved]
  - Drug ineffective [Unknown]

NARRATIVE: CASE EVENT DATE: 20240902
